FAERS Safety Report 8724403 (Version 2)
Quarter: 2012Q4

REPORT INFORMATION
  Report Type: Spontaneous
  Country: KR (occurrence: None)
  Receive Date: 20120727
  Receipt Date: 20120925
  Transmission Date: 20130627
  Serious: Yes (Other)
  Sender: FDA-Public Use
  Company Number: 1357578

PATIENT

DRUGS (3)
  1. METHOTREXATE [Suspect]
     Indication: RHEUMATOID ARTHRITIS
  2. LEFLUNOMIDE [Suspect]
     Indication: RHEUMATOID ARTHRITIS
  3. ANTIBIOTICS [Concomitant]

REACTIONS (3)
  - Tenosynovitis [None]
  - Cryptococcosis [None]
  - Injury [None]
